FAERS Safety Report 24849402 (Version 1)
Quarter: 2025Q1

REPORT INFORMATION
  Report Type: Report from Study
  Country: US (occurrence: US)
  Receive Date: 20250116
  Receipt Date: 20250116
  Transmission Date: 20250408
  Serious: Yes (Death)
  Sender: BAYER HEALTHCARE PHARMACEUTICALS INC.
  Company Number: US-BAYER-2025A005810

PATIENT
  Age: 54 Year
  Sex: Female

DRUGS (1)
  1. VITRAKVI [Suspect]
     Active Substance: LAROTRECTINIB

REACTIONS (1)
  - Death [Fatal]
